FAERS Safety Report 8333897-3 (Version None)
Quarter: 2012Q2

REPORT INFORMATION
  Report Type: 
  Country: None (occurrence: None)
  Receive Date: 20120503
  Receipt Date: 20120502
  Transmission Date: 20120825
  Serious: Yes (Life-Threatening)
  Sender: FDA-Public Use
  Company Number: GB-ROCHE-1064854

PATIENT
  Age: 65 Year
  Sex: Female

DRUGS (2)
  1. IBANDRONATE SODIUM [Suspect]
     Indication: METASTASES TO BONE
     Route: 048
     Dates: start: 20071002
  2. EXEMESTANE [Concomitant]
     Route: 048
     Dates: start: 20120320

REACTIONS (1)
  - GASTRIC ULCER HAEMORRHAGE [None]
